FAERS Safety Report 6210906-9 (Version None)
Quarter: 2009Q2

REPORT INFORMATION
  Report Type: 
  Country: None (occurrence: None)
  Receive Date: 20090601
  Receipt Date: 20090521
  Transmission Date: 20091009
  Serious: Yes (Life-Threatening)
  Sender: FDA-Public Use
  Company Number: AU-BAXTER-2009BH009106

PATIENT
  Age: 44 Year
  Sex: Female

DRUGS (2)
  1. CYCLOPHOSPHAMIDE [Suspect]
     Indication: CHEMOTHERAPY
     Route: 065
     Dates: start: 20090429, end: 20090429
  2. DOCETAXEL [Suspect]
     Indication: CHEMOTHERAPY
     Route: 065
     Dates: start: 20090429, end: 20090429

REACTIONS (5)
  - BACK PAIN [None]
  - CHEST DISCOMFORT [None]
  - DRUG HYPERSENSITIVITY [None]
  - FLUSHING [None]
  - HYPERVENTILATION [None]
